FAERS Safety Report 7583213-X (Version None)
Quarter: 2011Q2

REPORT INFORMATION
  Report Type: 
  Country: None (occurrence: None)
  Receive Date: 20110627
  Receipt Date: 20110627
  Transmission Date: 20111010
  Serious: Yes (Life-Threatening, Hospitalization)
  Sender: FDA-Public Use
  Company Number: None

PATIENT
  Sex: Male
  Weight: 82 kg

DRUGS (2)
  1. EXENATIDE - PATIENTS OWN MED INPN 06/22/2011 [Suspect]
     Indication: CARDIAC ARREST
     Dosage: DOSE BIDAC SUBQ
     Route: 058
     Dates: start: 20110622
  2. EXENATIDE - PATIENTS OWN MED INPN 06/22/2011 [Suspect]
     Indication: UNRESPONSIVE TO STIMULI
     Dosage: DOSE BIDAC SUBQ
     Route: 058
     Dates: start: 20110622

REACTIONS (8)
  - VOMITING [None]
  - VENTRICULAR TACHYCARDIA [None]
  - NAUSEA [None]
  - FALL [None]
  - PULSE ABSENT [None]
  - APNOEA [None]
  - HYPOTHERMIA [None]
  - CIRCULATORY COLLAPSE [None]
